FAERS Safety Report 5531178-4 (Version None)
Quarter: 2007Q4

REPORT INFORMATION
  Report Type: 
  Country: None (occurrence: None)
  Receive Date: 20071130
  Receipt Date: 20071119
  Transmission Date: 20080405
  Serious: Yes (Other)
  Sender: FDA-Public Use
  Company Number: US-PFIZER INC-2007099494

PATIENT
  Sex: Male

DRUGS (1)
  1. GEODON [Suspect]

REACTIONS (4)
  - AGGRESSION [None]
  - HYPERSOMNIA [None]
  - PARANOIA [None]
  - PSYCHOTIC DISORDER [None]
